FAERS Safety Report 10651672 (Version 1)
Quarter: 2014Q4

REPORT INFORMATION
  Report Type: Spontaneous
  Country: US (occurrence: None)
  Receive Date: 20141212
  Receipt Date: 20141212
  Transmission Date: 20150529
  Serious: Yes (Disabling)
  Sender: FDA-Public Use
  Company Number: None

PATIENT
  Age: 54 Year
  Sex: Female
  Weight: 75.75 kg

DRUGS (1)
  1. INTERFERON NOS [Suspect]
     Active Substance: INTERFERON
     Indication: MALIGNANT MELANOMA STAGE III
     Dosage: QDAY X 4WK, 3X/WK INTRAVENOUS
     Route: 042
     Dates: start: 20110404, end: 20120330

REACTIONS (1)
  - Dementia Alzheimer^s type [None]

NARRATIVE: CASE EVENT DATE: 20141125
